FAERS Safety Report 10643351 (Version 1)
Quarter: 2014Q4

REPORT INFORMATION
  Report Type: Spontaneous
  Country: US (occurrence: None)
  Receive Date: 20141128
  Receipt Date: 20141128
  Transmission Date: 20150529
  Serious: Yes (Other)
  Sender: FDA-Public Use
  Company Number: PHEH2014US000604

PATIENT
  Age: 72 Year
  Sex: Female

DRUGS (7)
  1. EPSOM SALTS (MAGNESIUM SULFATE) [Concomitant]
  2. MULTIVIT/VITAMINS NOS (VITAMINS NOS) [Concomitant]
  3. FLAXSEED OIL (LINUM USITATISSIMUM SEED OIL) [Concomitant]
  4. CALCIUM (CALCIUM) [Concomitant]
     Active Substance: CALCIUM
  5. TEKTURNA HCT [Suspect]
     Active Substance: ALISKIREN HEMIFUMARATE\HYDROCHLOROTHIAZIDE
     Dosage: UNK DF  (320/12.5MG), UNK
  6. VITAMIN (ASCORBIC ACID, CALCIUM PANTOTHENATE, CALCIUM PHOSPHATE, ERGOCALCIFEROL, FERROUS FUMARATE) [Concomitant]
  7. POTASSIUM (POTASSIUM) [Concomitant]
     Active Substance: POTASSIUM

REACTIONS (2)
  - Drug ineffective [None]
  - Blood pressure increased [None]
